FAERS Safety Report 16157378 (Version 1)
Quarter: 2019Q2

REPORT INFORMATION
  Report Type: Spontaneous
  Country: US (occurrence: US)
  Receive Date: 20190404
  Receipt Date: 20190404
  Transmission Date: 20190711
  Serious: No
  Sender: FDA-Public Use
  Company Number: US-PFIZER INC-2019134092

PATIENT
  Age: 65 Year
  Sex: Male
  Weight: 104.33 kg

DRUGS (1)
  1. LYRICA [Suspect]
     Active Substance: PREGABALIN
     Dosage: 600 MG, DAILY [200 MG 3 PILLS A DAY]

REACTIONS (3)
  - Pain in extremity [Unknown]
  - Withdrawal syndrome [Unknown]
  - Gait inability [Unknown]
